FAERS Safety Report 6221198-9 (Version None)
Quarter: 2009Q2

REPORT INFORMATION
  Report Type: 
  Country: None (occurrence: None)
  Receive Date: 20090610
  Receipt Date: 20090527
  Transmission Date: 20091009
  Serious: Yes (Hospitalization)
  Sender: FDA-Public Use
  Company Number: FR-ELI_LILLY_AND_COMPANY-FR200905005145

PATIENT
  Age: 44 Year
  Sex: Male
  Weight: 100 kg

DRUGS (10)
  1. ZYPREXA [Suspect]
     Dosage: 10 MG, 2/D
     Route: 048
     Dates: start: 20090409, end: 20090409
  2. ZYPREXA [Suspect]
     Dosage: 10 MG, DAILY (1/D)
     Route: 048
  3. GARDENAL [Concomitant]
     Dosage: 100 MG, 2/D
     Route: 048
     Dates: start: 20090409, end: 20090409
  4. GARDENAL [Concomitant]
     Dosage: 100 MG, DAILY (1/D)
     Route: 048
  5. DI-HYDAN [Concomitant]
     Dosage: 100 MG, 3/D
     Route: 048
     Dates: start: 20090409, end: 20090409
  6. DI-HYDAN [Concomitant]
     Dosage: 3.5 D/F, DAILY (1/D)
     Route: 048
  7. RIVOTRIL [Concomitant]
     Dosage: 2 MG, 4/D
     Route: 048
     Dates: start: 20090409, end: 20090409
  8. RIVOTRIL [Concomitant]
     Dosage: 2 D/F, 3/D
     Route: 048
  9. ATARAX [Concomitant]
     Dosage: 100 MG, 2/D
     Route: 048
     Dates: start: 20090409, end: 20090409
  10. ATARAX [Concomitant]
     Dosage: 100 MG, 2/D
     Route: 048

REACTIONS (2)
  - INCORRECT DOSE ADMINISTERED [None]
  - MEDICATION ERROR [None]
